FAERS Safety Report 24640471 (Version 1)
Quarter: 2024Q4

REPORT INFORMATION
  Report Type: Spontaneous
  Country: US (occurrence: US)
  Receive Date: 20241120
  Receipt Date: 20241120
  Transmission Date: 20250115
  Serious: No
  Sender: ALK-ABELLO
  Company Number: US-ALK-ABELLO A/S-2024AA004073

PATIENT

DRUGS (1)
  1. HISTAMINE PHOSPHATE [Suspect]
     Active Substance: HISTAMINE PHOSPHATE
     Indication: Skin test

REACTIONS (1)
  - False negative investigation result [Unknown]
